FAERS Safety Report 7277986-3 (Version None)
Quarter: 2011Q1

REPORT INFORMATION
  Report Type: 
  Country: None (occurrence: None)
  Receive Date: 20110207
  Receipt Date: 20110107
  Transmission Date: 20110831
  Serious: Yes (Other)
  Sender: FDA-Public Use
  Company Number: US-ASTRAZENECA-2010SE50943

PATIENT
  Age: 862 Month
  Sex: Male
  Weight: 83.9 kg

DRUGS (9)
  1. PLAVIX [Concomitant]
     Indication: BLOOD PRESSURE
  2. CRESTOR [Suspect]
     Indication: HYPERCHOLESTEROLAEMIA
     Route: 048
     Dates: start: 20060101, end: 20101027
  3. CENRTUM SILVER [Concomitant]
  4. PLAVIX [Concomitant]
     Indication: ANTICOAGULANT THERAPY
  5. ASPIRIN [Concomitant]
  6. DOXZOSIN [Concomitant]
     Indication: BLOOD PRESSURE MANAGEMENT
  7. TORPOL XL [Concomitant]
     Indication: CARDIAC DISORDER
  8. XFORGE [Concomitant]
     Indication: CARDIAC DISORDER
     Dosage: 10/160
     Route: 048
     Dates: start: 20100101
  9. XFORGE [Concomitant]
     Indication: BLOOD PRESSURE MANAGEMENT
     Dosage: 10/160
     Route: 048
     Dates: start: 20100101

REACTIONS (2)
  - CHONDROCALCINOSIS PYROPHOSPHATE [None]
  - MUSCULAR WEAKNESS [None]
